FAERS Safety Report 5776851-8 (Version None)
Quarter: 2008Q2

REPORT INFORMATION
  Report Type: 
  Country: None (occurrence: None)
  Receive Date: 20080618
  Receipt Date: 20080404
  Transmission Date: 20081010
  Serious: No
  Sender: FDA-Public Use
  Company Number: US-ASTRAZENECA-2008UW06919

PATIENT
  Age: 87 Year
  Sex: Female

DRUGS (3)
  1. SYMBICORT [Suspect]
     Indication: DYSPNOEA
     Dosage: 80/4.5 UG ONE PUFF BID
     Route: 055
     Dates: start: 20080301
  2. ATENOLOL [Concomitant]
  3. LTHROSINE [Concomitant]

REACTIONS (2)
  - CONDITION AGGRAVATED [None]
  - DRUG INEFFECTIVE [None]
